FAERS Safety Report 5734417-X (Version None)
Quarter: 2008Q2

REPORT INFORMATION
  Report Type: 
  Country: None (occurrence: None)
  Receive Date: 20080508
  Receipt Date: 20080428
  Transmission Date: 20081010
  Serious: Yes (Hospitalization)
  Sender: FDA-Public Use
  Company Number: 163-21880-08041948

PATIENT
  Age: 82 Year
  Sex: Female

DRUGS (10)
  1. REVLIMID [Suspect]
     Indication: MYELODYSPLASTIC SYNDROME
     Dosage: 10 MG, Q2D, ORAL
     Route: 048
     Dates: start: 20080306
  2. FOSAMAX [Concomitant]
  3. CELEBREX [Concomitant]
  4. B-12 (CYANOCOBALAMIN) [Concomitant]
  5. IRON (IRON) [Concomitant]
  6. CALCIUM (CALCIUM) [Concomitant]
  7. VITAMIN D [Concomitant]
  8. VITAMIN B-COMPLEX (VITAMIN B-COMPLEX) [Concomitant]
  9. CENTRUM SILVER (CENTRUM SILVER) [Concomitant]
  10. FOLIC ACID [Concomitant]

REACTIONS (1)
  - BLADDER DISORDER [None]
